FAERS Safety Report 8746154 (Version 9)
Quarter: 2013Q2

REPORT INFORMATION
  Report Type: Report from Study
  Country: CA (occurrence: CA)
  Receive Date: 20120827
  Receipt Date: 20130612
  Transmission Date: 20140414
  Serious: Yes (Other)
  Sender: FDA-Public Use
  Company Number: PHHY2012CA014273

PATIENT
  Sex: Female

DRUGS (2)
  1. SANDOSTATIN LAR [Suspect]
     Indication: INSULINOMA
     Dosage: 10 MG, EVERY MONTH
     Route: 030
     Dates: start: 20111220
  2. MULTIVITAMINS [Concomitant]
     Dosage: UNK UKN, UNK

REACTIONS (10)
  - Herpes zoster [Unknown]
  - Blood pressure increased [Unknown]
  - Fall [Recovered/Resolved]
  - Fatigue [Unknown]
  - Malaise [Unknown]
  - Decreased appetite [Unknown]
  - Heart rate increased [Unknown]
  - Asthenia [Unknown]
  - Dizziness [Unknown]
  - Drug ineffective [Unknown]
